FAERS Safety Report 6890842-5 (Version None)
Quarter: 2010Q3

REPORT INFORMATION
  Report Type: 
  Country: None (occurrence: None)
  Receive Date: 20100731
  Receipt Date: 20090331
  Transmission Date: 20110219
  Serious: No
  Sender: FDA-Public Use
  Company Number: US-PFIZER INC-2009192507

PATIENT
  Age: 71 Year
  Sex: Male

DRUGS (5)
  1. LIPITOR [Suspect]
     Dosage: UNK
  2. METOPROLOL SUCCINATE [Suspect]
     Dosage: UNK
  3. RAMIPRIL [Suspect]
     Dosage: UNK
  4. HYDROCHLOROTHIAZIDE [Suspect]
     Dosage: UNK
  5. POTASSIUM CHLORIDE [Suspect]
     Dosage: UNK

REACTIONS (1)
  - TENDONITIS [None]
